FAERS Safety Report 25337115 (Version 1)
Quarter: 2025Q2

REPORT INFORMATION
  Report Type: Spontaneous
  Country: US (occurrence: US)
  Receive Date: 20250520
  Receipt Date: 20250520
  Transmission Date: 20250717
  Serious: No
  Sender: BRISTOL-MYERS SQUIBB COMPANY
  Company Number: US-BRISTOL-MYERS SQUIBB COMPANY-2025-069219

PATIENT
  Age: 69 Year
  Sex: Female

DRUGS (1)
  1. LENALIDOMIDE [Suspect]
     Active Substance: LENALIDOMIDE
     Indication: Vitamin D deficiency
     Dosage: TAKE 1 WHOLE CAPSULE BY MOUTH WITH WATER DAILY FOR 14 DAYS ON, 7 DAYS OFF EACH 21 DAY CYCLE. DONT BR
     Route: 048

REACTIONS (1)
  - Off label use [Unknown]
